FAERS Safety Report 9255153 (Version 1)
Quarter: 2013Q2

REPORT INFORMATION
  Report Type: Spontaneous
  Country: BR (occurrence: BR)
  Receive Date: 20130425
  Receipt Date: 20130425
  Transmission Date: 20140414
  Serious: Yes (Other)
  Sender: FDA-Public Use
  Company Number: BR-JNJFOC-20130411152

PATIENT
  Age: 21 Year
  Sex: Female
  Weight: 54 kg

DRUGS (1)
  1. EVRA [Suspect]
     Indication: CONTRACEPTION
     Route: 062
     Dates: start: 2010

REACTIONS (3)
  - Dengue fever [Recovering/Resolving]
  - Platelet count decreased [Recovering/Resolving]
  - Vaginal haemorrhage [Not Recovered/Not Resolved]
